FAERS Safety Report 21214640 (Version 1)
Quarter: 2022Q3

REPORT INFORMATION
  Report Type: Spontaneous
  Country: IN (occurrence: IN)
  Receive Date: 20220816
  Receipt Date: 20220816
  Transmission Date: 20221026
  Serious: Yes (Other)
  Sender: FDA-Public Use
  Company Number: IN-SUN PHARMACEUTICAL INDUSTRIES LTD-2022R1-348327

PATIENT
  Weight: 2.29 kg

DRUGS (3)
  1. POTASSIUM MAGNESIUM CITRATE (4:1:2) [Suspect]
     Active Substance: POTASSIUM MAGNESIUM CITRATE (4:1:2)
     Indication: Renal tubular acidosis
     Dosage: 15 ML = 20 MEQ, TID
     Route: 064
  2. HYDROXYCHLOROQUINE [Suspect]
     Active Substance: HYDROXYCHLOROQUINE
     Indication: Renal tubular acidosis
     Dosage: 300 MILLIGRAM, DAILY
     Route: 064
  3. PREDNISOLONE [Suspect]
     Active Substance: PREDNISOLONE
     Indication: Renal tubular acidosis
     Dosage: 10 MILLIGRAM, BID
     Route: 064

REACTIONS (2)
  - Low birth weight baby [Unknown]
  - Foetal exposure during pregnancy [Unknown]
